FAERS Safety Report 7715106-9 (Version None)
Quarter: 2011Q3

REPORT INFORMATION
  Report Type: 
  Country: None (occurrence: None)
  Receive Date: 20110810
  Receipt Date: 20110502
  Transmission Date: 20111222
  Serious: No
  Sender: FDA-Public Use
  Company Number: 1000020659

PATIENT
  Age: 75 Year
  Sex: Female

DRUGS (12)
  1. SIMVASTATIN [Concomitant]
  2. PROCARDIA (NIFEDIPINE) (NIFEDIPINE) [Concomitant]
  3. LISINOPRIL [Concomitant]
  4. AGGRENOX (ASASANTIN) (ASASANTIN) [Concomitant]
  5. TRAZODONE (TRAZODONE) (TRAZODONE) [Concomitant]
  6. FLEXERIL (CYCLOBENZAPRINE) (CYCLOBENZAPRINE) [Concomitant]
  7. SAVELLA [Suspect]
     Indication: FIBROMYALGIA
     Dosage: SEE IMAGE, ORAL
     Route: 048
     Dates: start: 20110408, end: 20110409
  8. SAVELLA [Suspect]
     Indication: FIBROMYALGIA
     Dosage: SEE IMAGE, ORAL
     Route: 048
     Dates: start: 20110407, end: 20110407
  9. SAVELLA [Suspect]
     Indication: FIBROMYALGIA
     Dosage: SEE IMAGE, ORAL
     Route: 048
     Dates: start: 20110410, end: 20110413
  10. SAVELLA [Suspect]
     Indication: FIBROMYALGIA
     Dosage: SEE IMAGE, ORAL
     Route: 048
     Dates: start: 20110414, end: 20110401
  11. SAVELLA [Suspect]
     Indication: FIBROMYALGIA
     Dosage: SEE IMAGE, ORAL
     Route: 048
     Dates: start: 20110401, end: 20110401
  12. CYMBALTA (DULOXETINE HYDROCHLORIDE) (DULOXETINE HYDROCHLORIDE) [Concomitant]

REACTIONS (7)
  - ANXIETY [None]
  - IRRITABILITY [None]
  - NIGHTMARE [None]
  - HEART RATE INCREASED [None]
  - NAUSEA [None]
  - INSOMNIA [None]
  - TEMPERATURE INTOLERANCE [None]
